FAERS Safety Report 6480215-1 (Version None)
Quarter: 2009Q4

REPORT INFORMATION
  Report Type: 
  Country: None (occurrence: None)
  Receive Date: 20091208
  Receipt Date: 20091207
  Transmission Date: 20100525
  Serious: Yes (Other)
  Sender: FDA-Public Use
  Company Number: GXKR2009DE13110

PATIENT

DRUGS (1)
  1. METFORMIN (NGX) [Suspect]
     Route: 065

REACTIONS (1)
  - SARCOIDOSIS [None]
